FAERS Safety Report 13894287 (Version 3)
Quarter: 2018Q3

REPORT INFORMATION
  Report Type: Report from Study
  Country: None (occurrence: TR)
  Receive Date: 20170822
  Receipt Date: 20180810
  Transmission Date: 20181010
  Serious: Yes (Hospitalization)
  Sender: FDA-Public Use
  Company Number: TR-ABBVIE-17K-161-2077869-00

PATIENT
  Age: 67 Year
  Sex: Female
  Weight: 55 kg

DRUGS (14)
  1. MOTILIUM [Concomitant]
     Active Substance: DOMPERIDONE
     Indication: CONSTIPATION
     Route: 050
  2. COMBIVENT [Concomitant]
     Active Substance: ALBUTEROL SULFATE\IPRATROPIUM BROMIDE
     Indication: RESPIRATORY THERAPY
     Route: 055
  3. ULCURAN [Concomitant]
     Indication: GASTRIC DISORDER
     Route: 042
  4. NORVASC [Concomitant]
     Active Substance: AMLODIPINE BESYLATE
     Indication: HYPERTENSION
     Route: 050
  5. DUODOPA [Suspect]
     Active Substance: CARBIDOPA\LEVODOPA
     Indication: PARKINSON^S DISEASE
     Dosage: CONTINUOUS DOSE: 3.60 ML?EXTRA DOSE: 2.00 ML
     Route: 050
     Dates: start: 20170807, end: 201708
  6. LEV?END [Concomitant]
     Indication: NERVOUS SYSTEM DISORDER
     Route: 050
  7. SEROQUEL [Concomitant]
     Active Substance: QUETIAPINE FUMARATE
     Indication: SEDATIVE THERAPY
     Route: 050
  8. ASIST [Concomitant]
     Indication: RESPIRATORY THERAPY
     Dosage: 3X2
     Route: 042
  9. ULCURAN [Concomitant]
     Indication: PROPHYLAXIS
  10. OSMOLAK [Concomitant]
     Indication: CONSTIPATION
     Dosage: AS NEEDED
     Route: 050
  11. DUODOPA [Suspect]
     Active Substance: CARBIDOPA\LEVODOPA
     Dosage: CONTINUOUS DOSE: 3.40 ML?EXTRA DOSE: 2.00 ML
     Route: 050
     Dates: start: 201708
  12. SELECTRA [Concomitant]
     Indication: SEDATIVE THERAPY
     Route: 050
  13. CLEXANE [Concomitant]
     Active Substance: ENOXAPARIN SODIUM
     Indication: ANTICOAGULANT THERAPY
     Route: 058
  14. NEOSTIGMIN [Concomitant]
     Active Substance: NEOSTIGMINE
     Indication: CONSTIPATION
     Route: 042

REACTIONS (2)
  - Muscle contractions involuntary [Not Recovered/Not Resolved]
  - Generalised erythema [Recovered/Resolved]

NARRATIVE: CASE EVENT DATE: 20170817
